FAERS Safety Report 9701666 (Version 1)
Quarter: 2013Q4

REPORT INFORMATION
  Report Type: Spontaneous
  Country: US (occurrence: US)
  Receive Date: 20131119
  Receipt Date: 20131119
  Transmission Date: 20140711
  Serious: Yes (Hospitalization)
  Sender: FDA-Public Use
  Company Number: US-ORACLE-2012S1000012

PATIENT
  Sex: Male

DRUGS (4)
  1. KRYSTEXXA INJECTION [Suspect]
     Indication: GOUT
     Route: 042
     Dates: start: 201112, end: 201202
  2. COLCHICINE [Concomitant]
     Indication: GOUT
  3. TYLENOL /00724201/ [Concomitant]
     Indication: PREMEDICATION
  4. ALL OTHER THERAPEUTIC PRODUCTS [Concomitant]
     Indication: PREMEDICATION

REACTIONS (1)
  - Infusion related reaction [Unknown]
